FAERS Safety Report 4399673-1 (Version None)
Quarter: 2004Q3

REPORT INFORMATION
  Report Type: 
  Country: None (occurrence: None)
  Receive Date: 20040716
  Receipt Date: 20040614
  Transmission Date: 20050211
  Serious: Yes (Other)
  Sender: FDA-Public Use
  Company Number: JP-ROCHE-371204

PATIENT
  Age: 12 Month
  Sex: Male
  Weight: 12 kg

DRUGS (7)
  1. ROCEPHIN [Suspect]
     Indication: PNEUMONIA
     Route: 042
     Dates: start: 20040604, end: 20040606
  2. ZITHROMAX [Concomitant]
     Route: 048
     Dates: start: 20040604, end: 20040606
  3. ASTOMIN [Concomitant]
     Route: 048
     Dates: start: 20040604, end: 20040616
  4. PERIACTIN [Concomitant]
     Route: 048
     Dates: start: 20040604, end: 20040616
  5. MUCODYNE [Concomitant]
     Route: 048
     Dates: start: 20040604, end: 20040616
  6. HOKUNALIN [Concomitant]
     Dosage: ROUTE REPORTED AS TO. FORMULATION: TAPE.
     Dates: start: 20040601, end: 20040604
  7. NEOPHYLLIN [Concomitant]
     Dosage: TRADE NAME: NEOPHYLLIN M.
     Route: 042
     Dates: start: 20040604, end: 20040607

REACTIONS (1)
  - PURPURA [None]
